FAERS Safety Report 7822826-4 (Version None)
Quarter: 2011Q4

REPORT INFORMATION
  Report Type: 
  Country: None (occurrence: None)
  Receive Date: 20111018
  Receipt Date: 20101227
  Transmission Date: 20120403
  Serious: No
  Sender: FDA-Public Use
  Company Number: US-ASTRAZENECA-2010SE60679

PATIENT
  Age: 63 Year
  Sex: Male
  Weight: 90.7 kg

DRUGS (2)
  1. SPIRIVA [Concomitant]
  2. SYMBICORT [Suspect]
     Indication: CHRONIC OBSTRUCTIVE PULMONARY DISEASE
     Dosage: 160 MCG, 2 PUFFS BID
     Route: 055

REACTIONS (9)
  - DRUG INEFFECTIVE [None]
  - INSOMNIA [None]
  - DYSPNOEA [None]
  - OROPHARYNGEAL PAIN [None]
  - HAEMOPTYSIS [None]
  - DYSPHONIA [None]
  - CONTUSION [None]
  - DYSPHAGIA [None]
  - COUGH [None]
